FAERS Safety Report 5868874-5 (Version None)
Quarter: 2008Q3

REPORT INFORMATION
  Report Type: 
  Country: None (occurrence: None)
  Receive Date: 20080902
  Receipt Date: 20080902
  Transmission Date: 20090109
  Serious: No
  Sender: FDA-Public Use
  Company Number: None

PATIENT
  Age: 67 Year
  Sex: Female

DRUGS (1)
  1. SOLARAZE [Suspect]
     Indication: PAIN IN EXTREMITY
     Dosage: 1 APPLICATION TRANSDERMAL
     Route: 062
     Dates: start: 20080801, end: 20080801

REACTIONS (2)
  - GASTROOESOPHAGEAL REFLUX DISEASE [None]
  - PAIN [None]
